FAERS Safety Report 20632246 (Version 2)
Quarter: 2022Q2

REPORT INFORMATION
  Report Type: Spontaneous
  Country: US (occurrence: US)
  Receive Date: 20220324
  Receipt Date: 20220428
  Transmission Date: 20220721
  Serious: Yes (Hospitalization)
  Sender: FDA-Public Use
  Company Number: US-ALLERGAN-2209471US

PATIENT
  Sex: Female

DRUGS (2)
  1. LO LOESTRIN FE [Suspect]
     Active Substance: ETHINYL ESTRADIOL\NORETHINDRONE ACETATE
     Indication: Endometriosis
     Dosage: UNK UNK, QD
     Dates: start: 2010, end: 2021
  2. RESTASIS [Concomitant]
     Active Substance: CYCLOSPORINE
     Indication: Dry eye
     Dosage: UNK, PRN
     Dates: start: 2008

REACTIONS (8)
  - Cholecystitis acute [Unknown]
  - Cholecystitis infective [Unknown]
  - Cholelithiasis [Unknown]
  - Illness [Unknown]
  - Off label use [Unknown]
  - Vomiting [Unknown]
  - Abdominal pain [Unknown]
  - Nausea [Unknown]

NARRATIVE: CASE EVENT DATE: 20100101
